FAERS Safety Report 7201494-9 (Version None)
Quarter: 2010Q4

REPORT INFORMATION
  Report Type: 
  Country: None (occurrence: None)
  Receive Date: 20101216
  Receipt Date: 20101201
  Transmission Date: 20110411
  Serious: Yes (Other)
  Sender: FDA-Public Use
  Company Number: 2010-3889

PATIENT
  Age: 52 Year
  Sex: Female
  Weight: 48 kg

DRUGS (5)
  1. SOMATULINE AUTOGEL 120MG (LANRETOTIDE AUTOGEL) (LANREOTIDE) (LANREOTID [Suspect]
     Indication: NEUROENDOCRINE TUMOUR
     Dosage: 120 MG (120 MG,1 IN 1 M),INTRAMUSCULAR
     Route: 030
     Dates: start: 20090601
  2. SOMATULINE AUTOGEL 90MG (LANREOTIDE AUTOGEL) (LANREOTIDE) (LANREOTIDE [Suspect]
     Indication: NEUROENDOCRINE TUMOUR
     Dosage: 90 MG (90 MG,1 IN 1  M),INTRAMUSCULAR
     Route: 030
     Dates: start: 20081001, end: 20090601
  3. CREON [Concomitant]
  4. PLAVIX [Concomitant]
  5. VITAMIN B12 [Concomitant]

REACTIONS (1)
  - TRANSIENT ISCHAEMIC ATTACK [None]
